FAERS Safety Report 8923166 (Version 2)
Quarter: 2012Q4

REPORT INFORMATION
  Report Type: 
  Country: CL (occurrence: CL)
  Receive Date: 20121124
  Receipt Date: 20121128
  Transmission Date: 20130627
  Serious: Yes (Death, Other)
  Sender: FDA-Public Use
  Company Number: PHHY2012CL106727

PATIENT
  Age: 80 Year
  Sex: Male

DRUGS (2)
  1. EXELON PATCH [Suspect]
     Indication: DEMENTIA ALZHEIMER^S TYPE
     Dosage: 3 patchs a day
     Route: 062
  2. PROLOPA [Concomitant]

REACTIONS (3)
  - Viral infection [Fatal]
  - Eschar [Fatal]
  - Overdose [Unknown]
